FAERS Safety Report 8556838-2 (Version None)
Quarter: 2012Q3

REPORT INFORMATION
  Report Type: 
  Country: None (occurrence: None)
  Receive Date: 20120719
  Receipt Date: 20120703
  Transmission Date: 20120928
  Serious: Yes (Life-Threatening, Hospitalization, Disabling)
  Sender: FDA-Public Use
  Company Number: ACET20120007

PATIENT
  Age: 26 Year
  Sex: Female

DRUGS (1)
  1. ACETAMINOPHEN [Suspect]
     Indication: ANKYLOSING SPONDYLITIS

REACTIONS (16)
  - GENERAL PHYSICAL HEALTH DETERIORATION [None]
  - HYPOTHERMIA [None]
  - LIVER TRANSPLANT [None]
  - ACUTE HEPATIC FAILURE [None]
  - OVERDOSE [None]
  - TRANSPLANT REJECTION [None]
  - BRAIN OEDEMA [None]
  - BLOOD PRESSURE INCREASED [None]
  - HYPOXIC-ISCHAEMIC ENCEPHALOPATHY [None]
  - CHOLESTASIS [None]
  - MALIGNANT HYPERTENSION [None]
  - ENCEPHALOPATHY [None]
  - INTRACRANIAL PRESSURE INCREASED [None]
  - BLOOD GLUCOSE DECREASED [None]
  - INTERNATIONAL NORMALISED RATIO INCREASED [None]
  - HEPATIC NECROSIS [None]
